FAERS Safety Report 7556844-0 (Version None)
Quarter: 2011Q2

REPORT INFORMATION
  Report Type: 
  Country: None (occurrence: None)
  Receive Date: 20110620
  Receipt Date: 20110609
  Transmission Date: 20111010
  Serious: Yes (Hospitalization)
  Sender: FDA-Public Use
  Company Number: FI-PFIZER INC-2008076026

PATIENT
  Age: 64 Year
  Sex: Female
  Weight: 75 kg

DRUGS (13)
  1. RANITIDINE [Concomitant]
     Route: 048
     Dates: start: 20080801, end: 20080806
  2. METOCLOPRAMIDE [Concomitant]
     Route: 048
     Dates: start: 20080811, end: 20080813
  3. NEUPOGEN [Concomitant]
     Indication: INFECTION PROPHYLAXIS
  4. IBANDRONATE SODIUM [Concomitant]
     Route: 048
     Dates: start: 20060101
  5. COZAAR [Concomitant]
     Route: 048
     Dates: start: 20030101, end: 20080729
  6. IBUPROFEN [Concomitant]
     Route: 048
  7. ROSUVASTATIN [Concomitant]
     Route: 048
     Dates: start: 19930101
  8. TIZANIDINE HCL [Concomitant]
     Route: 048
     Dates: start: 20030101
  9. SUNITINIB MALATE [Suspect]
     Indication: BREAST CANCER
     Dosage: 37.5 MG, 1X/DAY, 2 WEEKS/1 WEEK OFF
     Route: 048
     Dates: start: 20080515
  10. DOCETAXEL [Suspect]
     Indication: BREAST CANCER
     Dosage: 129 MG, CYCLIC EVERY 3 WEEKS
     Route: 042
     Dates: start: 20080514
  11. NEUPOGEN [Concomitant]
     Indication: NEUTROPENIA
     Dosage: DAILY
     Dates: start: 20080627, end: 20080821
  12. LACTOPHILUS [Concomitant]
     Route: 048
     Dates: start: 20080613
  13. CITALOPRAM [Concomitant]
     Route: 048
     Dates: start: 20050101

REACTIONS (1)
  - HYPOTENSION [None]
